FAERS Safety Report 12077516 (Version 1)
Quarter: 2016Q1

REPORT INFORMATION
  Report Type: Spontaneous
  Country: US (occurrence: US)
  Receive Date: 20160215
  Receipt Date: 20160215
  Transmission Date: 20160526
  Serious: No
  Sender: FDA-Public Use
  Company Number: US-009507513-1602USA007096

PATIENT
  Sex: Female
  Weight: 47.62 kg

DRUGS (5)
  1. NAPROSYN [Suspect]
     Active Substance: NAPROXEN
     Indication: RHEUMATOID ARTHRITIS
     Route: 065
  2. VICTRELIS [Suspect]
     Active Substance: BOCEPREVIR
     Indication: HEPATITIS B
     Dosage: 200 MG, 4 IN 8 HR
     Route: 048
     Dates: start: 201312
  3. COPEGUS [Suspect]
     Active Substance: RIBAVIRIN
     Dosage: IN THE AM (200 MG, 3 IN 24 HR), IN THE PM (200 MG, 2 IN 24 HR)
     Route: 048
     Dates: start: 201312
  4. PEGASYS [Suspect]
     Active Substance: PEGINTERFERON ALFA-2A
     Indication: CHRONIC HEPATITIS C
  5. PEGASYS [Suspect]
     Active Substance: PEGINTERFERON ALFA-2A
     Indication: HEPATITIS B
     Dosage: 180 MICROGRAM, 1 IN 1 WK
     Route: 058

REACTIONS (10)
  - Hypophagia [Recovered/Resolved]
  - Gingival swelling [Unknown]
  - Gingival pain [Unknown]
  - Weight decreased [Recovered/Resolved]
  - Decreased appetite [Recovered/Resolved]
  - Skin exfoliation [Recovered/Resolved]
  - Malaise [Recovered/Resolved]
  - Depression [Unknown]
  - Urticaria [Recovering/Resolving]
  - Pruritus [Recovered/Resolved]
